FAERS Safety Report 9262105 (Version 4)
Quarter: 2013Q2

REPORT INFORMATION
  Report Type: Report from Study
  Country: CA (occurrence: MX)
  Receive Date: 20130430
  Receipt Date: 20130619
  Transmission Date: 20140414
  Serious: Yes (Other)
  Sender: FDA-Public Use
  Company Number: CA-ROCHE-1216207

PATIENT
  Age: 55 Year
  Sex: Female
  Weight: 58 kg

DRUGS (6)
  1. ACTEMRA [Suspect]
     Indication: RHEUMATOID ARTHRITIS
     Route: 042
     Dates: start: 20130326
  2. ACTEMRA [Suspect]
     Route: 042
     Dates: start: 20130425
  3. ZOPICLONE [Concomitant]
     Route: 048
  4. VALTREX [Concomitant]
     Route: 048
  5. PROMETRIUM [Concomitant]
  6. ADVIL [Concomitant]
     Indication: ARTHRALGIA
     Route: 048

REACTIONS (3)
  - Melanocytic naevus [Recovered/Resolved]
  - Skin papilloma [Recovered/Resolved]
  - Diarrhoea [Recovered/Resolved]
